FAERS Safety Report 8627477 (Version 4)
Quarter: 2012Q4

REPORT INFORMATION
  Report Type: 
  Country: US (occurrence: None)
  Receive Date: 20120608
  Receipt Date: 20120830
  Transmission Date: 20130627
  Serious: Yes (Death)
  Sender: FDA-Public Use
  Company Number: JPI-P-021672

PATIENT
  Age: 62 Year
  Sex: Male

DRUGS (6)
  1. XYREM [Suspect]
     Indication: CATAPLEXY
     Dosage: SEE IMAGE
     Route: 048
     Dates: start: 20080818
  2. XYREM [Suspect]
     Indication: CATAPLEXY
     Dosage: SEE IMAGE
     Route: 048
     Dates: start: 20081110
  3. XYREM [Suspect]
     Indication: CATAPLEXY
     Dosage: SEE IMAGE
     Route: 048
     Dates: start: 20100423
  4. XYREM [Suspect]
     Indication: CATAPLEXY
     Dosage: SEE IMAGE
     Route: 048
     Dates: start: 20101108
  5. XYREM [Suspect]
     Indication: CATAPLEXY
     Dosage: SEE IMAGE
     Route: 048
     Dates: start: 20110603
  6. XYREM [Suspect]
     Indication: CATAPLEXY
     Dosage: SEE IMAGE
     Route: 048
     Dates: start: 20111116

REACTIONS (1)
  - LOSS OF CONSCIOUSNESS [None]
